FAERS Safety Report 8985152 (Version 2)
Quarter: 2013Q1

REPORT INFORMATION
  Report Type: Spontaneous
  Country: US (occurrence: US)
  Receive Date: 20121226
  Receipt Date: 20130108
  Transmission Date: 20140127
  Serious: No
  Sender: FDA-Public Use
  Company Number: US-PFIZER INC-2012328338

PATIENT
  Sex: Female

DRUGS (2)
  1. ZOLOFT [Suspect]
     Dosage: UNK
  2. NEURONTIN [Concomitant]
     Dosage: UNK

REACTIONS (4)
  - Malaise [Unknown]
  - Impaired work ability [Unknown]
  - Nervous system disorder [Unknown]
  - Intervertebral disc protrusion [Unknown]
